FAERS Safety Report 7951821-X (Version None)
Quarter: 2011Q4

REPORT INFORMATION
  Report Type: 
  Country: None (occurrence: None)
  Receive Date: 20111201
  Receipt Date: 20111124
  Transmission Date: 20120403
  Serious: Yes (Other)
  Sender: FDA-Public Use
  Company Number: JP-PFIZER INC-2011287866

PATIENT
  Age: 35 Year
  Sex: Female

DRUGS (1)
  1. VFEND [Suspect]

REACTIONS (2)
  - ZYGOMYCOSIS [None]
  - DRUG INEFFECTIVE [None]
